FAERS Safety Report 6113139-X (Version None)
Quarter: 2009Q1

REPORT INFORMATION
  Report Type: 
  Country: None (occurrence: None)
  Receive Date: 20090312
  Receipt Date: 20090306
  Transmission Date: 20090719
  Serious: Yes (Other)
  Sender: FDA-Public Use
  Company Number: US-MERCK-0707USA00980

PATIENT
  Age: 39 Year
  Sex: Female

DRUGS (8)
  1. FUROSEMIDE [Concomitant]
     Indication: FLUID RETENTION
     Route: 048
     Dates: start: 19990101
  2. TOPROL-XL [Concomitant]
     Indication: HYPERTENSION
     Route: 065
     Dates: start: 19950101
  3. FOSAMAX [Suspect]
     Indication: OSTEOPOROSIS
     Route: 048
     Dates: start: 20020406, end: 20061229
  4. ZOLOFT [Concomitant]
     Indication: DEPRESSION
     Route: 065
     Dates: start: 20030101
  5. WELLBUTRIN XL [Concomitant]
     Indication: DEPRESSION
     Route: 065
     Dates: start: 20030101
  6. PLAQUENIL [Concomitant]
     Indication: SYSTEMIC LUPUS ERYTHEMATOSUS
     Route: 065
     Dates: start: 19980101
  7. ATIVAN [Concomitant]
     Indication: ANXIETY
     Route: 065
     Dates: start: 20000101
  8. ACETAMINOPHEN AND HYDROCODONE BITARTRATE [Concomitant]
     Indication: PAIN
     Route: 065
     Dates: start: 20010101

REACTIONS (9)
  - ANXIETY [None]
  - DEPRESSION [None]
  - DEVICE RELATED INFECTION [None]
  - IRON DEFICIENCY [None]
  - NAUSEA [None]
  - NECROSIS [None]
  - OSTEOMYELITIS [None]
  - OSTEONECROSIS [None]
  - TOOTH LOSS [None]
